FAERS Safety Report 20700929 (Version 2)
Quarter: 2024Q2

REPORT INFORMATION
  Report Type: Spontaneous
  Country: US (occurrence: US)
  Receive Date: 20220412
  Receipt Date: 20240412
  Transmission Date: 20240716
  Serious: No
  Sender: FDA-Public Use
  Company Number: US-ASTELLAS-2022US001273

PATIENT
  Age: 17 Year
  Sex: Male

DRUGS (1)
  1. PROGRAF [Suspect]
     Active Substance: TACROLIMUS
     Indication: Product used for unknown indication
     Dosage: ONE 0.5 MG CAPSULE EVERY MORNING AND ONE 0.5 MG CAPSULE EVERY OTHER NIGHT
     Route: 065
     Dates: start: 202001

REACTIONS (3)
  - Wrong technique in product usage process [Unknown]
  - Product physical issue [Unknown]
  - Off label use [Unknown]
